FAERS Safety Report 7439227-3 (Version None)
Quarter: 2011Q2

REPORT INFORMATION
  Report Type: 
  Country: None (occurrence: None)
  Receive Date: 20110427
  Receipt Date: 20110418
  Transmission Date: 20111010
  Serious: Yes (Life-Threatening, Hospitalization)
  Sender: FDA-Public Use
  Company Number: US-JNJFOC-20110309416

PATIENT
  Sex: Male
  Weight: 99.2 kg

DRUGS (7)
  1. RISPERDAL [Concomitant]
     Indication: PRODUCT USED FOR UNKNOWN INDICATION
     Dosage: 2 MG 1 - 2 TABS AS NEEDED DAILY
     Route: 048
  2. SEROQUEL [Concomitant]
     Indication: PRODUCT USED FOR UNKNOWN INDICATION
     Dosage: 200 MG 1 - 3 TABS AS NEEDED DAILY
     Route: 048
  3. ANTIPSYCHOTICS [Concomitant]
     Indication: PRODUCT USED FOR UNKNOWN INDICATION
     Route: 065
  4. INVEGA SUSTENNA [Suspect]
     Indication: PRODUCT USED FOR UNKNOWN INDICATION
     Route: 030
  5. INVEGA SUSTENNA [Suspect]
     Route: 030
  6. INVEGA SUSTENNA [Suspect]
     Route: 030
  7. INVEGA SUSTENNA [Suspect]
     Route: 030

REACTIONS (4)
  - NEUROLEPTIC MALIGNANT SYNDROME [None]
  - INAPPROPRIATE SCHEDULE OF DRUG ADMINISTRATION [None]
  - PRODUCT QUALITY ISSUE [None]
  - DRUG INEFFECTIVE [None]
